FAERS Safety Report 16943629 (Version 1)
Quarter: 2019Q4

REPORT INFORMATION
  Report Type: Spontaneous
  Country: US (occurrence: US)
  Receive Date: 20191022
  Receipt Date: 20191022
  Transmission Date: 20200122
  Serious: Yes (Hospitalization)
  Sender: FDA-Public Use
  Company Number: US-ROCHE-2440627

PATIENT
  Age: 13 Year
  Sex: Female

DRUGS (1)
  1. NUTROPIN AQ [Suspect]
     Active Substance: SOMATROPIN
     Indication: CHRONIC KIDNEY DISEASE
     Dosage: FORM STRENGTH: 20MG/2ML
     Route: 058
     Dates: start: 20190330, end: 201910

REACTIONS (1)
  - Abdominal pain upper [Unknown]
